FAERS Safety Report 5917704-1 (Version None)
Quarter: 2008Q4

REPORT INFORMATION
  Report Type: 
  Country: None (occurrence: None)
  Receive Date: 20081009
  Receipt Date: 20080929
  Transmission Date: 20090506
  Serious: Yes (Other)
  Sender: FDA-Public Use
  Company Number: SPV1-2008-02089

PATIENT
  Age: 40 Year
  Sex: Male
  Weight: 84.4 kg

DRUGS (2)
  1. CARBATROL [Suspect]
     Indication: CONVULSION
     Dosage: 300 MG, 2X/DAY:BID, ORAL
     Route: 048
     Dates: start: 19980101
  2. CARBATROL [Suspect]
     Indication: NARCOLEPSY
     Dosage: 300 MG, 2X/DAY:BID, ORAL
     Route: 048
     Dates: start: 19980101

REACTIONS (3)
  - GLOMERULONEPHRITIS [None]
  - HYPERTENSION [None]
  - OFF LABEL USE [None]
